FAERS Safety Report 19718678 (Version 1)
Quarter: 2021Q3

REPORT INFORMATION
  Report Type: Spontaneous
  Country: US (occurrence: US)
  Receive Date: 20210818
  Receipt Date: 20210818
  Transmission Date: 20211014
  Serious: Yes (Other)
  Sender: FDA-Public Use
  Company Number: None

PATIENT
  Age: 52 Year
  Sex: Female

DRUGS (2)
  1. REGEN?COV [Suspect]
     Active Substance: CASIRIVIMAB\IMDEVIMAB
     Indication: COVID-19
     Route: 042
     Dates: end: 20210816
  2. REGEN?COV (EUA) [Concomitant]
     Dates: start: 20210816, end: 20210816

REACTIONS (1)
  - Syncope [None]

NARRATIVE: CASE EVENT DATE: 20210816
